FAERS Safety Report 9025447 (Version 2)
Quarter: 2013Q2

REPORT INFORMATION
  Report Type: Spontaneous
  Country: BR (occurrence: BR)
  Receive Date: 20130122
  Receipt Date: 20130426
  Transmission Date: 20140414
  Serious: Yes (Hospitalization)
  Sender: FDA-Public Use
  Company Number: BR-ABBOTT-13P-020-1038064-00

PATIENT
  Age: 74 Year
  Sex: Female

DRUGS (13)
  1. CREON [Suspect]
     Indication: PRODUCT USED FOR UNKNOWN INDICATION
     Dosage: 175000 IU DAILY
     Route: 048
  2. XALACON [Suspect]
     Indication: PRODUCT USED FOR UNKNOWN INDICATION
  3. ACETYLSALICYLIC ACID [Concomitant]
     Indication: BLOOD DISORDER
     Dosage: 1 TABLET DAILY IN THE MORNING
     Route: 048
  4. ALPRAZOLAM [Concomitant]
     Indication: ANXIETY
     Dosage: 1 TABLET DAILY
     Route: 048
  5. ANCORON [Concomitant]
     Indication: ARRHYTHMIA
     Dosage: 100 MG DAILY
     Route: 048
     Dates: start: 201209
  6. XALATAN [Concomitant]
     Indication: GLAUCOMA
     Route: 047
     Dates: start: 2011
  7. SYNTHROID [Concomitant]
     Indication: THYROID HORMONE REPLACEMENT THERAPY
     Route: 048
  8. LANTUS [Concomitant]
     Indication: DIABETES MELLITUS
     Dosage: DEPENDS ON GLUCOSE LEVELS - 6 IU, 7 IU OR 8IU
     Route: 058
     Dates: start: 20100724
  9. LANTUS [Concomitant]
     Indication: PANCREATIC DISORDER
  10. NICORD [Concomitant]
     Indication: HYPERTENSION
     Dosage: IN THE MORNING/AT NIGHT
     Route: 048
     Dates: start: 2003
  11. OMEPRAZOLE [Concomitant]
     Indication: PRODUCT USED FOR UNKNOWN INDICATION
     Route: 048
     Dates: start: 20100624
  12. COSOPT [Concomitant]
     Indication: GLAUCOMA
     Route: 047
     Dates: start: 2011
  13. PANCREATIN [Concomitant]
     Indication: PRODUCT USED FOR UNKNOWN INDICATION
     Dosage: 3 TABLETS AT BREAKFAST/ 6 AT LUNCH/ 6 AT DINNER
     Route: 048

REACTIONS (7)
  - Arrhythmia [Recovered/Resolved]
  - Arrhythmia [Unknown]
  - Ocular hyperaemia [Unknown]
  - Thyroid disorder [Unknown]
  - Glaucoma [Unknown]
  - Asthenia [Unknown]
  - Drug dose omission [Unknown]
